FAERS Safety Report 12006814 (Version 11)
Quarter: 2022Q1

REPORT INFORMATION
  Report Type: Spontaneous
  Country: FR (occurrence: FR)
  Receive Date: 20160204
  Receipt Date: 20220121
  Transmission Date: 20220423
  Serious: Yes (Hospitalization, Disabling, Congenital Anomaly, Other)
  Sender: FDA-Public Use
  Company Number: FR-ABBVIE-16P-056-1553356-00

PATIENT
  Age: 0 Year
  Sex: Male
  Weight: 3.28 kg

DRUGS (5)
  1. VALPROATE SODIUM [Suspect]
     Active Substance: VALPROATE SODIUM
     Indication: Maternal exposure timing unspecified
     Route: 064
  2. VALPROATE SODIUM [Suspect]
     Active Substance: VALPROATE SODIUM
     Indication: Epilepsy
  3. FOLIC ACID [Concomitant]
     Active Substance: FOLIC ACID
     Indication: Maternal exposure timing unspecified
     Route: 065
  4. TRIMEBUTINE MALEATE [Concomitant]
     Active Substance: TRIMEBUTINE MALEATE
     Indication: Maternal exposure timing unspecified
     Route: 065
  5. FOLDINE [Concomitant]
     Indication: Maternal exposure timing unspecified

REACTIONS (85)
  - Hypotonia [Unknown]
  - Joint laxity [Unknown]
  - Anorectal haemangioma [Unknown]
  - Psychomotor retardation [Not Recovered/Not Resolved]
  - Angina pectoris [Not Recovered/Not Resolved]
  - Laryngitis [Not Recovered/Not Resolved]
  - Nasopharyngitis [Not Recovered/Not Resolved]
  - Foetal anticonvulsant syndrome [Not Recovered/Not Resolved]
  - Nervous system disorder [Not Recovered/Not Resolved]
  - Dystonia [Unknown]
  - Eye movement disorder [Unknown]
  - Cerebral atrophy [Recovered/Resolved]
  - Scoliosis [Not Recovered/Not Resolved]
  - Fine motor skill dysfunction [Not Recovered/Not Resolved]
  - Gastrooesophageal reflux disease [Unknown]
  - Cough [Not Recovered/Not Resolved]
  - Pharyngeal disorder [Not Recovered/Not Resolved]
  - Finger deformity [Not Recovered/Not Resolved]
  - Autism spectrum disorder [Not Recovered/Not Resolved]
  - Speech disorder developmental [Not Recovered/Not Resolved]
  - Autism spectrum disorder [Not Recovered/Not Resolved]
  - Behaviour disorder [Not Recovered/Not Resolved]
  - Foot deformity [Unknown]
  - Strabismus [Unknown]
  - Dysmorphism [Not Recovered/Not Resolved]
  - Astigmatism [Unknown]
  - Upper respiratory tract infection [Not Recovered/Not Resolved]
  - Developmental delay [Not Recovered/Not Resolved]
  - Intellectual disability [Not Recovered/Not Resolved]
  - Cognitive disorder [Not Recovered/Not Resolved]
  - Eye disorder [Unknown]
  - Ear disorder [Unknown]
  - Nasal disorder [Unknown]
  - Ear infection [Unknown]
  - Infection [Unknown]
  - Bronchitis [Unknown]
  - Echolalia [Unknown]
  - Fatigue [Unknown]
  - Dysmorphism [Unknown]
  - Lip disorder [Unknown]
  - Kyphosis [Unknown]
  - Disturbance in attention [Unknown]
  - Developmental coordination disorder [Not Recovered/Not Resolved]
  - Ligament laxity [Unknown]
  - Disturbance in attention [Unknown]
  - Sluggishness [Unknown]
  - Affect lability [Unknown]
  - Apathy [Unknown]
  - Refraction disorder [Unknown]
  - Hypertonia [Unknown]
  - Psychomotor skills impaired [Unknown]
  - Dysgraphia [Unknown]
  - Dyspraxia [Unknown]
  - Daydreaming [Unknown]
  - Movement disorder [Unknown]
  - Balance disorder [Unknown]
  - Autism spectrum disorder [Unknown]
  - Stereotypy [Unknown]
  - Intellectual disability [Unknown]
  - Hand-eye coordination impaired [Unknown]
  - Impaired reasoning [Unknown]
  - Winged scapula [Unknown]
  - Lordosis [Unknown]
  - Congenital knee deformity [Unknown]
  - Learning disorder [Unknown]
  - Aggression [Unknown]
  - Hyperacusis [Unknown]
  - Congenital oculomotor apraxia [Unknown]
  - Anxiety disorder [Unknown]
  - Dyskinesia [Unknown]
  - Logorrhoea [Unknown]
  - Disorientation [Unknown]
  - Language disorder [Unknown]
  - Executive dysfunction [Unknown]
  - Personal relationship issue [Unknown]
  - Learning disorder [Unknown]
  - Loss of personal independence in daily activities [Unknown]
  - Constipation [Unknown]
  - Bronchitis [Unknown]
  - Alpha 1 foetoprotein increased [Unknown]
  - Milk allergy [Not Recovered/Not Resolved]
  - Ill-defined disorder [Not Recovered/Not Resolved]
  - Foetal exposure during pregnancy [Unknown]
  - Skin necrosis [Unknown]
  - Hypermobility syndrome [Unknown]

NARRATIVE: CASE EVENT DATE: 20060525
